FAERS Safety Report 9839607 (Version 2)
Quarter: 2014Q1

REPORT INFORMATION
  Report Type: Spontaneous
  Country: US (occurrence: US)
  Receive Date: 20140124
  Receipt Date: 20140203
  Transmission Date: 20141002
  Serious: Yes (Hospitalization)
  Sender: FDA-Public Use
  Company Number: US-BIOGENIDEC-2014BI005818

PATIENT
  Sex: Female
  Weight: 66 kg

DRUGS (5)
  1. AVONEX [Suspect]
     Indication: RELAPSING-REMITTING MULTIPLE SCLEROSIS
     Route: 030
  2. AVONEX [Suspect]
     Indication: RELAPSING-REMITTING MULTIPLE SCLEROSIS
     Route: 030
     Dates: start: 20121126, end: 20130116
  3. TECFIDERA [Concomitant]
     Indication: RELAPSING-REMITTING MULTIPLE SCLEROSIS
  4. PLAVIX [Concomitant]
  5. SIMVASTATIN [Concomitant]

REACTIONS (7)
  - Visual impairment [Unknown]
  - Adverse drug reaction [Unknown]
  - Demyelination [Unknown]
  - Malaise [Unknown]
  - Headache [Unknown]
  - Neck pain [Unknown]
  - Musculoskeletal stiffness [Unknown]
